FAERS Safety Report 25773513 (Version 1)
Quarter: 2025Q3

REPORT INFORMATION
  Report Type: Spontaneous
  Country: US (occurrence: None)
  Receive Date: 20250906
  Receipt Date: 20250906
  Transmission Date: 20251021
  Serious: Yes (Other)
  Sender: FDA-CTU
  Company Number: None

PATIENT
  Age: 44 Year
  Sex: Female
  Weight: 90 kg

DRUGS (4)
  1. SEMAGLUTIDE [Suspect]
     Active Substance: SEMAGLUTIDE
     Indication: Weight decreased
     Route: 058
     Dates: start: 20240216, end: 20240501
  2. SERTRALINE [Concomitant]
     Active Substance: SERTRALINE HYDROCHLORIDE
  3. KETAMINE [Concomitant]
     Active Substance: KETAMINE
  4. Gem Vitamin [Concomitant]

REACTIONS (8)
  - Anger [None]
  - Irritability [None]
  - Personality change [None]
  - Suicidal ideation [None]
  - Aggression [None]
  - Feeling of despair [None]
  - Aggression [None]
  - Mental disorder [None]

NARRATIVE: CASE EVENT DATE: 20240417
